FAERS Safety Report 9442325 (Version 1)
Quarter: 2013Q3

REPORT INFORMATION
  Report Type: Spontaneous
  Country: US (occurrence: US)
  Receive Date: 20130806
  Receipt Date: 20130806
  Transmission Date: 20140515
  Serious: No
  Sender: FDA-Public Use
  Company Number: US-GLAXOSMITHKLINE-A1003248A

PATIENT
  Age: 78 Year
  Sex: Female

DRUGS (11)
  1. ADVAIR [Suspect]
     Indication: ASTHMA
     Dosage: 1PUFF TWICE PER DAY
     Route: 055
     Dates: start: 2007
  2. ALBUTEROL SULFATE [Concomitant]
     Route: 055
  3. LOPRESSOR [Concomitant]
  4. POTASSIUM SUPPLEMENT [Concomitant]
  5. PROBIOTIC [Concomitant]
  6. SYNTHROID [Concomitant]
  7. BABY ASPIRIN [Concomitant]
  8. LYRICA [Concomitant]
  9. ONE A DAY VITAMINS [Concomitant]
  10. VITAMIN D [Concomitant]
  11. PROVENTIL [Concomitant]

REACTIONS (3)
  - Drug ineffective [Unknown]
  - Inhalation therapy [Not Recovered/Not Resolved]
  - Product quality issue [Unknown]
